FAERS Safety Report 6329152-3 (Version None)
Quarter: 2009Q3

REPORT INFORMATION
  Report Type: 
  Country: None (occurrence: None)
  Receive Date: 20090825
  Receipt Date: 20090825
  Transmission Date: 20100115
  Serious: Yes (Hospitalization)
  Sender: FDA-Public Use
  Company Number: None

PATIENT
  Sex: Male
  Weight: 34.5 kg

DRUGS (1)
  1. METHOTREXATE 14.4 MG [Suspect]
     Dosage: 14.4 MG

REACTIONS (8)
  - COAGULOPATHY [None]
  - CONVULSION [None]
  - DRUG CLEARANCE DECREASED [None]
  - HEPATOTOXICITY [None]
  - NAUSEA [None]
  - RENAL FAILURE ACUTE [None]
  - VOMITING [None]
  - WEIGHT INCREASED [None]
